APPROVED DRUG PRODUCT: SIMVASTATIN
Active Ingredient: SIMVASTATIN
Strength: 10MG
Dosage Form/Route: TABLET;ORAL
Application: A076052 | Product #002
Applicant: IVAX PHARMACEUTICALS INC SUB TEVA PHARMACEUTICALS USA
Approved: Jun 23, 2006 | RLD: No | RS: No | Type: DISCN